FAERS Safety Report 11350453 (Version 2)
Quarter: 2015Q4

REPORT INFORMATION
  Report Type: Spontaneous
  Country: CA (occurrence: CA)
  Receive Date: 20150807
  Receipt Date: 20151217
  Transmission Date: 20160304
  Serious: Yes (Other)
  Sender: FDA-Public Use
  Company Number: CA-AMGEN-CANSP2015078573

PATIENT
  Age: 84 Year
  Sex: Female

DRUGS (11)
  1. PROLIA [Suspect]
     Active Substance: DENOSUMAB
     Indication: PRODUCT USED FOR UNKNOWN INDICATION
     Dosage: UNK
     Route: 065
  2. METFORMIN [Concomitant]
     Active Substance: METFORMIN HYDROCHLORIDE
     Dosage: 500 MG, QID
  3. NEXIUM [Concomitant]
     Active Substance: ESOMEPRAZOLE MAGNESIUM
     Dosage: 20 MG, QD
  4. VITAMIN B6 [Concomitant]
     Active Substance: PYRIDOXINE HYDROCHLORIDE
  5. VITALUX                            /00322001/ [Concomitant]
     Indication: EYE DISORDER
  6. VITAMIN D3 [Concomitant]
     Active Substance: CHOLECALCIFEROL
  7. BABY ASPIRIN [Concomitant]
     Active Substance: ASPIRIN
     Dosage: 81 MG, UNK
  8. AMLODIPINE [Concomitant]
     Active Substance: AMLODIPINE BESYLATE
     Indication: HYPERTENSION
     Dosage: 5 MG, UNK
  9. CALTRATE                           /00944201/ [Concomitant]
  10. CALTRATE PLUS                      /01438001/ [Concomitant]
     Active Substance: CALCIUM\CHOLECALCIFEROL\COPPER\MAGNESIUM\MANGANESE\ZINC
     Indication: ASTHENIA
  11. VITAMIN B12 + FOLIC ACID [Concomitant]

REACTIONS (6)
  - Rash [Recovered/Resolved]
  - Type 2 diabetes mellitus [Unknown]
  - Asthenia [Unknown]
  - Blister [Unknown]
  - Arthritis [Unknown]
  - Memory impairment [Unknown]

NARRATIVE: CASE EVENT DATE: 201411
